FAERS Safety Report 17657912 (Version 1)
Quarter: 2020Q2

REPORT INFORMATION
  Report Type: Spontaneous
  Country: US (occurrence: US)
  Receive Date: 20200411
  Receipt Date: 20200411
  Transmission Date: 20200713
  Serious: No
  Sender: FDA-Public Use
  Company Number: US-TEVA-2020-US-1221098

PATIENT
  Sex: Male

DRUGS (1)
  1. ALYQ [Suspect]
     Active Substance: TADALAFIL
     Indication: PULMONARY ARTERIAL HYPERTENSION
     Dosage: 9 BREATHS, INHALATION
     Route: 065
     Dates: start: 20200206

REACTIONS (2)
  - Adverse drug reaction [Unknown]
  - Product substitution issue [Unknown]
